FAERS Safety Report 9333719 (Version 1)
Quarter: 2013Q2

REPORT INFORMATION
  Report Type: Spontaneous
  Country: DE (occurrence: DE)
  Receive Date: 20130606
  Receipt Date: 20130606
  Transmission Date: 20140414
  Serious: Yes (Hospitalization)
  Sender: FDA-Public Use
  Company Number: DE-009507513-1305DEU017382

PATIENT
  Age: 63 Year
  Sex: Female

DRUGS (3)
  1. FOSAMAX EINMAL W?CHENTLICH 70 MG TABLETTEN [Suspect]
     Indication: OSTEOPOROSIS
     Dosage: 70 MG, QW
     Route: 048
     Dates: start: 2002
  2. CALCIUM (UNSPECIFIED) [Concomitant]
  3. VITAMIN D (UNSPECIFIED) [Concomitant]

REACTIONS (1)
  - Fracture [Unknown]
